FAERS Safety Report 25166325 (Version 1)
Quarter: 2025Q2

REPORT INFORMATION
  Report Type: Spontaneous
  Country: US (occurrence: US)
  Receive Date: 20250407
  Receipt Date: 20250407
  Transmission Date: 20250716
  Serious: No
  Sender: ROCHE
  Company Number: US-ROCHE-10000248291

PATIENT
  Sex: Female

DRUGS (1)
  1. ERIVEDGE [Suspect]
     Active Substance: VISMODEGIB
     Indication: Illness
     Dosage: STRENGTH 150 MG
     Route: 048
     Dates: start: 202411

REACTIONS (2)
  - Off label use [Unknown]
  - No adverse event [Unknown]
